FAERS Safety Report 6318340-8 (Version None)
Quarter: 2009Q3

REPORT INFORMATION
  Report Type: 
  Country: None (occurrence: None)
  Receive Date: 20090821
  Receipt Date: 20090812
  Transmission Date: 20100115
  Serious: Yes (Hospitalization)
  Sender: FDA-Public Use
  Company Number: DE-MERCK-0908DEU00017

PATIENT
  Age: 46 Year
  Sex: Female

DRUGS (18)
  1. FOSAMAX [Suspect]
     Indication: OSTEOPOROSIS
     Route: 048
     Dates: start: 20010101, end: 20040101
  2. ALENDRONATE SODIUM [Suspect]
     Indication: OSTEOPOROSIS
     Route: 048
     Dates: start: 20040101
  3. ALENDRONATE SODIUM [Suspect]
     Route: 048
     Dates: end: 20090501
  4. METHOTREXATE [Concomitant]
     Route: 065
     Dates: start: 19950101
  5. ACEMETACIN [Concomitant]
     Route: 048
  6. SULFASALAZINE [Concomitant]
     Route: 048
  7. CORTISONE [Concomitant]
     Route: 065
  8. CHOLECALCIFEROL [Concomitant]
     Route: 048
  9. CALCIUM CARBONATE AND CHOLECALCIFEROL [Concomitant]
     Route: 048
  10. RAMIPRIL [Concomitant]
     Route: 048
  11. METOPROLOL TARTRATE [Concomitant]
     Route: 048
  12. IRBESARTAN [Concomitant]
     Route: 048
  13. PYRIDOXINE HYDROCHLORIDE AND THIAMINE HYDROCHLORIDE [Concomitant]
     Route: 048
  14. HYDROCHLOROTHIAZIDE [Concomitant]
     Route: 048
  15. FOLIC ACID [Concomitant]
     Route: 065
  16. POTASSIUM IODIDE [Concomitant]
     Route: 048
  17. LEFLUNOMIDE [Concomitant]
     Route: 048
  18. ETANERCEPT [Concomitant]
     Route: 065
     Dates: start: 20050101

REACTIONS (1)
  - EXOSTOSIS [None]
